FAERS Safety Report 15300717 (Version 3)
Quarter: 2020Q4

REPORT INFORMATION
  Report Type: Report from Study
  Country: CA (occurrence: CA)
  Receive Date: 20180821
  Receipt Date: 20201216
  Transmission Date: 20210113
  Serious: Yes (Other)
  Sender: FDA-Public Use
  Company Number: PHHY2018CA075624

PATIENT
  Sex: Male

DRUGS (1)
  1. GILENYA [Suspect]
     Active Substance: FINGOLIMOD HYDROCHLORIDE
     Indication: RELAPSING-REMITTING MULTIPLE SCLEROSIS
     Dosage: UNK
     Route: 048
     Dates: start: 20140903

REACTIONS (5)
  - Expanded disability status scale score increased [Recovering/Resolving]
  - Urinary hesitation [Unknown]
  - Micturition urgency [Unknown]
  - Muscular weakness [Unknown]
  - Product dose omission issue [Unknown]
